FAERS Safety Report 7637017-X (Version None)
Quarter: 2011Q3

REPORT INFORMATION
  Report Type: 
  Country: None (occurrence: None)
  Receive Date: 20110726
  Receipt Date: 20110715
  Transmission Date: 20111222
  Serious: Yes (Hospitalization, Disabling)
  Sender: FDA-Public Use
  Company Number: JP-PFIZER INC-2011138476

PATIENT
  Age: 77 Year
  Sex: Female
  Weight: 49.5 kg

DRUGS (7)
  1. ATORVASTATIN CALCIUM [Suspect]
     Indication: HYPERCHOLESTEROLAEMIA
     Dosage: 10 MG, 1X/DAY
     Route: 048
     Dates: start: 20101227
  2. CARBIDOPA AND LEVODOPA [Concomitant]
     Indication: PARKINSON'S DISEASE
     Dosage: UNK
     Route: 048
  3. CILOSTAZOL [Concomitant]
     Indication: CEREBRAL INFARCTION
     Dosage: UNK
     Route: 048
  4. FAMOTIDINE [Concomitant]
     Dosage: UNK
     Route: 048
  5. MAGNESIUM SULFATE [Concomitant]
     Indication: CONSTIPATION
     Dosage: UNK
     Route: 048
  6. PRAMIPEXOLE [Concomitant]
     Indication: PARKINSON'S DISEASE
     Dosage: UNK
     Route: 048
  7. ASPIRIN [Concomitant]
     Indication: CEREBRAL INFARCTION
     Dosage: UNK
     Route: 048

REACTIONS (1)
  - CEREBRAL INFARCTION [None]
